FAERS Safety Report 12571803 (Version 1)
Quarter: 2016Q3

REPORT INFORMATION
  Report Type: Spontaneous
  Country: US (occurrence: US)
  Receive Date: 20160719
  Receipt Date: 20160719
  Transmission Date: 20161109
  Serious: No
  Sender: FDA-Public Use
  Company Number: US-BAUSCH-BL-2015-018364

PATIENT
  Age: 8 Decade
  Sex: Male
  Weight: 86.71 kg

DRUGS (1)
  1. XIFAXAN [Suspect]
     Active Substance: RIFAXIMIN
     Indication: PRODUCT USED FOR UNKNOWN INDICATION
     Route: 048
     Dates: start: 201504

REACTIONS (2)
  - Expulsion of medication [Unknown]
  - Dysphagia [Unknown]

NARRATIVE: CASE EVENT DATE: 20150728
